FAERS Safety Report 7213942-9 (Version None)
Quarter: 2011Q1

REPORT INFORMATION
  Report Type: 
  Country: None (occurrence: None)
  Receive Date: 20110106
  Receipt Date: 20110104
  Transmission Date: 20110831
  Serious: Yes (Other)
  Sender: FDA-Public Use
  Company Number: CA-ABBOTT-10P-028-0690512-00

PATIENT
  Sex: Male
  Weight: 89.892 kg

DRUGS (9)
  1. PREDNISONE [Concomitant]
     Indication: COLITIS ULCERATIVE
     Dosage: TAPERED DOSE
     Route: 048
     Dates: start: 20070101
  2. DIPENTUM [Concomitant]
     Indication: ANTIINFLAMMATORY THERAPY
     Route: 048
     Dates: start: 20090101, end: 20100813
  3. APO-TRIMEBUTINE [Concomitant]
     Indication: PROPHYLAXIS
  4. COUNSYL [Concomitant]
     Indication: HYPERTENSION
     Route: 048
     Dates: start: 20050101
  5. APO-HYDROXYQUINE [Concomitant]
     Indication: ARTHRITIS
     Route: 048
     Dates: start: 20080101
  6. HUMIRA [Suspect]
     Indication: COLITIS ULCERATIVE
     Route: 058
     Dates: start: 20100422, end: 20100811
  7. RABEPRAZOLE SODIUM [Concomitant]
     Indication: GASTRIC DISORDER
     Route: 048
     Dates: start: 20080101
  8. LUMISAN [Concomitant]
     Indication: GLAUCOMA
     Dates: start: 20080101
  9. APO-TRIMEBUTINE [Concomitant]
     Indication: IRRITABLE BOWEL SYNDROME
     Dates: start: 20090101, end: 20100813

REACTIONS (5)
  - COLITIS ULCERATIVE [None]
  - DRUG INEFFECTIVE [None]
  - PAIN [None]
  - DIARRHOEA [None]
  - RECTAL HAEMORRHAGE [None]
